FAERS Safety Report 14480042 (Version 1)
Quarter: 2018Q1

REPORT INFORMATION
  Report Type: Spontaneous
  Country: US (occurrence: US)
  Receive Date: 20180201
  Receipt Date: 20180201
  Transmission Date: 20180509
  Serious: Yes (Hospitalization)
  Sender: FDA-Public Use
  Company Number: None

PATIENT
  Age: 54 Year
  Sex: Female
  Weight: 127.5 kg

DRUGS (1)
  1. CISPLATIN. [Suspect]
     Active Substance: CISPLATIN
     Dates: end: 20171219

REACTIONS (18)
  - Dizziness [None]
  - Pulmonary embolism [None]
  - Blood glucose increased [None]
  - Sputum discoloured [None]
  - Chills [None]
  - Pyrexia [None]
  - Syncope [None]
  - Glycosylated haemoglobin increased [None]
  - Palpitations [None]
  - Pulmonary congestion [None]
  - Productive cough [None]
  - Pain in extremity [None]
  - Headache [None]
  - Tachycardia [None]
  - Respiratory disorder [None]
  - Dyspnoea [None]
  - Oropharyngeal pain [None]
  - Myalgia [None]

NARRATIVE: CASE EVENT DATE: 20171227
